FAERS Safety Report 11049311 (Version 1)
Quarter: 2015Q2

REPORT INFORMATION
  Report Type: Other
  Country: IT (occurrence: IT)
  Receive Date: 20150420
  Receipt Date: 20150420
  Transmission Date: 20150821
  Serious: Yes (Other)
  Sender: FDA-Public Use
  Company Number: IT-MYLANLABS-2015M1011377

PATIENT

DRUGS (5)
  1. CLARITROMICINA [Suspect]
     Active Substance: CLARITHROMYCIN
     Indication: INFLUENZA
     Dosage: 500 MG, QD
     Route: 048
     Dates: start: 20150325
  2. BRUFEN                             /00109201/ [Interacting]
     Active Substance: IBUPROFEN
     Indication: INFLUENZA
     Dosage: 1200 MG, QD
     Route: 048
     Dates: start: 20150325
  3. COUMADIN [Interacting]
     Active Substance: WARFARIN SODIUM
     Indication: CARDIAC VALVE PROSTHESIS USER
     Dosage: 23.75 MG, QW
     Route: 048
     Dates: start: 20030610, end: 20150331
  4. ANTRA                              /00661201/ [Concomitant]
     Active Substance: OMEPRAZOLE
     Indication: PRODUCT USED FOR UNKNOWN INDICATION
     Route: 048
  5. DILATREND [Concomitant]
     Active Substance: CARVEDILOL
     Indication: PRODUCT USED FOR UNKNOWN INDICATION
     Route: 048

REACTIONS (2)
  - International normalised ratio increased [Recovering/Resolving]
  - Labelled drug-drug interaction medication error [Recovering/Resolving]

NARRATIVE: CASE EVENT DATE: 20150401
